FAERS Safety Report 23548879 (Version 2)
Quarter: 2024Q1

REPORT INFORMATION
  Report Type: Spontaneous
  Country: US (occurrence: US)
  Receive Date: 20240221
  Receipt Date: 20240222
  Transmission Date: 20240410
  Serious: Yes (Death)
  Sender: FDA-Public Use
  Company Number: US-PFIZER INC-202400043873

PATIENT
  Age: 33 Year
  Sex: Female

DRUGS (1)
  1. OXBRYTA [Suspect]
     Active Substance: VOXELOTOR
     Dosage: 500MG, 3 TABLETS ONCE DAILY, ORALLY
     Route: 048
     Dates: start: 20230925

REACTIONS (1)
  - Death [Fatal]

NARRATIVE: CASE EVENT DATE: 20231107
